FAERS Safety Report 12193023 (Version 2)
Quarter: 2017Q2

REPORT INFORMATION
  Report Type: Report from Study
  Country: US (occurrence: US)
  Receive Date: 20160318
  Receipt Date: 20170410
  Transmission Date: 20170830
  Serious: Yes (Death, Hospitalization, Other)
  Sender: FDA-Public Use
  Company Number: US-GILEAD-2016-0203001

PATIENT
  Age: 48 Year
  Sex: Male

DRUGS (3)
  1. LEDIPASVIR/SOFOSBUVIR [Suspect]
     Active Substance: LEDIPASVIR\SOFOSBUVIR
     Indication: CHRONIC HEPATITIS C
     Dosage: 1 DF, UNK
     Route: 048
     Dates: end: 20160226
  2. LACTULOSE. [Concomitant]
     Active Substance: LACTULOSE
     Dosage: 30 ML, UNK
     Route: 048
     Dates: start: 20160220
  3. COUMADIN [Concomitant]
     Active Substance: WARFARIN SODIUM
     Dosage: UNK
     Dates: end: 20160221

REACTIONS (15)
  - Hepatic encephalopathy [Unknown]
  - Organ failure [Fatal]
  - Coagulopathy [Unknown]
  - Chronic hepatic failure [Unknown]
  - Hyponatraemia [Unknown]
  - Hypercalcaemia [Unknown]
  - Varices oesophageal [Unknown]
  - Hyperkalaemia [Unknown]
  - Ascites [Unknown]
  - Hypovolaemia [None]
  - Loss of consciousness [Unknown]
  - Acute kidney injury [Unknown]
  - Atrioventricular block first degree [Unknown]
  - Mental status changes [Unknown]
  - Hypotension [Unknown]

NARRATIVE: CASE EVENT DATE: 20160221
